FAERS Safety Report 5703954-6 (Version None)
Quarter: 2008Q2

REPORT INFORMATION
  Report Type: 
  Country: None (occurrence: None)
  Receive Date: 20080414
  Receipt Date: 20080408
  Transmission Date: 20081010
  Serious: Yes (Death)
  Sender: FDA-Public Use
  Company Number: PHEH2008US03584

PATIENT
  Sex: Female

DRUGS (2)
  1. DIGOXIN [Concomitant]
  2. RECLAST [Suspect]
     Dosage: 5 MG, ONCE YEARLY

REACTIONS (1)
  - DEATH [None]
